FAERS Safety Report 22532597 (Version 1)
Quarter: 2023Q2

REPORT INFORMATION
  Report Type: Report from Study
  Country: US (occurrence: US)
  Receive Date: 20230607
  Receipt Date: 20230607
  Transmission Date: 20230722
  Serious: Yes (Other)
  Sender: FDA-Public Use
  Company Number: US-002147023-NVSC2019US087024

PATIENT
  Age: 16 Month
  Sex: Male

DRUGS (12)
  1. ZOLGENSMA [Suspect]
     Active Substance: ONASEMNOGENE ABEPARVOVEC-XIOI
     Indication: Spinal muscular atrophy
     Dosage: 63.60 ML, ONCE/SINGLE
     Route: 042
     Dates: start: 20190710
  2. PREDNISOLONE [Concomitant]
     Active Substance: PREDNISOLONE
     Indication: Laboratory test abnormal
     Dosage: 15MG/5ML. TAKE 3.8 ML/DAY
     Route: 048
     Dates: start: 20190809
  3. PEDIA-LAX (DOCUSATE SODIUM) [Concomitant]
     Active Substance: DOCUSATE SODIUM
     Indication: Constipation
     Dosage: 0.50 MG, PRN
     Route: 054
     Dates: start: 20181214
  4. IPRATROPIUM [Concomitant]
     Active Substance: IPRATROPIUM
     Indication: Respiratory disorder prophylaxis
     Dosage: 2.50 ML, QID
     Route: 055
     Dates: start: 20180530
  5. LEVALBUTEROL [Concomitant]
     Active Substance: LEVALBUTEROL
     Indication: Wheezing
     Dosage: 3.00 ML, QID
     Route: 055
     Dates: start: 20190819
  6. LEVALBUTEROL [Concomitant]
     Active Substance: LEVALBUTEROL
     Indication: Dyspnoea
  7. OMEPRAZOLE [Concomitant]
     Active Substance: OMEPRAZOLE
     Indication: Haematemesis
     Dosage: 5 ML, EVERY MORNING
     Route: 048
     Dates: start: 20190104
  8. OMEPRAZOLE [Concomitant]
     Active Substance: OMEPRAZOLE
     Indication: Nausea
  9. PHYTONADIONE [Concomitant]
     Active Substance: PHYTONADIONE
     Indication: Laboratory test abnormal
     Dosage: 2.00 ML, QD
     Route: 048
     Dates: start: 20190828
  10. MIRALAX [Concomitant]
     Active Substance: POLYETHYLENE GLYCOL 3350
     Indication: Product used for unknown indication
     Dosage: A1TSP DISSOLVED IN H2O, QD, PRN
     Route: 065
     Dates: start: 20190604
  11. TRIAMCINOLONE [Concomitant]
     Active Substance: TRIAMCINOLONE
     Indication: Feeding tube user
     Dosage: UNK, TID
     Route: 065
     Dates: start: 20181010
  12. URSODIOL [Concomitant]
     Active Substance: URSODIOL
     Indication: Laboratory test abnormal
     Dosage: 2.50 ML, BID
     Route: 048
     Dates: start: 20190828

REACTIONS (3)
  - Thrombocytopenia [Recovered/Resolved]
  - Leukopenia [Recovered/Resolved]
  - Pyrexia [Recovered/Resolved]

NARRATIVE: CASE EVENT DATE: 20190713
